FAERS Safety Report 7733794-8 (Version None)
Quarter: 2011Q3

REPORT INFORMATION
  Report Type: 
  Country: None (occurrence: None)
  Receive Date: 20110902
  Receipt Date: 20110902
  Transmission Date: 20111222
  Serious: Yes (Hospitalization)
  Sender: FDA-Public Use
  Company Number: None

PATIENT
  Age: 39 Year
  Sex: Female
  Weight: 68.0396 kg

DRUGS (1)
  1. WELLBUTRIN [Suspect]
     Indication: DEPRESSION
     Dosage: 25MG -} 100 MG 1X DAY, 1 X NIGHT ORAL
     Route: 048
     Dates: start: 20070701, end: 20070819

REACTIONS (5)
  - GRAND MAL CONVULSION [None]
  - IMPAIRED DRIVING ABILITY [None]
  - PANIC ATTACK [None]
  - ANXIETY [None]
  - LEARNING DISORDER [None]
